FAERS Safety Report 6712089-5 (Version None)
Quarter: 2010Q2

REPORT INFORMATION
  Report Type: 
  Country: None (occurrence: None)
  Receive Date: 20100505
  Receipt Date: 20100426
  Transmission Date: 20101027
  Serious: Yes (Hospitalization, Other)
  Sender: FDA-Public Use
  Company Number: PHHY2010BR26245

PATIENT
  Age: 75 Year
  Sex: Female
  Weight: 72 kg

DRUGS (5)
  1. SANDIMMUNE [Suspect]
     Dosage: 25 MG
     Dates: start: 20100101
  2. SANDIMMUNE [Suspect]
     Dosage: 25 MG, QD
  3. SANDIMMUNE [Suspect]
     Dosage: 25 MG, BID
  4. SANDIMMUNE [Suspect]
     Dosage: 25 MG, QD
     Dates: start: 20100425
  5. GRANULOKINE [Concomitant]
     Dosage: UNK,UNK

REACTIONS (9)
  - ABDOMINAL PAIN UPPER [None]
  - ACTIVITIES OF DAILY LIVING IMPAIRED [None]
  - ASTHENIA [None]
  - DRUG ADMINISTRATION ERROR [None]
  - GAIT DISTURBANCE [None]
  - GALLBLADDER DISORDER [None]
  - PAIN IN EXTREMITY [None]
  - PYREXIA [None]
  - VOMITING [None]
